FAERS Safety Report 7378665-4 (Version None)
Quarter: 2011Q1

REPORT INFORMATION
  Report Type: 
  Country: None (occurrence: None)
  Receive Date: 20110328
  Receipt Date: 20110314
  Transmission Date: 20110831
  Serious: Yes (Other)
  Sender: FDA-Public Use
  Company Number: ES-JNJFOC-20110303244

PATIENT
  Age: 64 Year
  Sex: Female
  Weight: 83 kg

DRUGS (11)
  1. REMICADE [Suspect]
     Dosage: 2 DOSES
     Route: 042
  2. IBUPROFEN [Concomitant]
  3. OPIREN [Concomitant]
  4. DOBUPAL [Concomitant]
  5. ATROVENT [Concomitant]
  6. INACID [Concomitant]
  7. IDEOS [Concomitant]
  8. REMICADE [Suspect]
     Indication: PSORIATIC ARTHROPATHY
     Route: 042
  9. SUMIAL [Concomitant]
  10. PREDNISONE [Concomitant]
  11. GARDENAL [Concomitant]

REACTIONS (6)
  - TACHYCARDIA [None]
  - HYPOTENSION [None]
  - INFUSION RELATED REACTION [None]
  - HYPERHIDROSIS [None]
  - DYSPNOEA [None]
  - VOMITING [None]
